FAERS Safety Report 4652092-2 (Version None)
Quarter: 2005Q2

REPORT INFORMATION
  Report Type: 
  Country: None (occurrence: None)
  Receive Date: 20050504
  Receipt Date: 20050208
  Transmission Date: 20051028
  Serious: Yes (Congenital Anomaly, Other)
  Sender: FDA-Public Use
  Company Number: 200511259GDDC

PATIENT
  Sex: Female
  Weight: 71 kg

DRUGS (2)
  1. CLOMID [Suspect]
     Indication: POLYCYSTIC OVARIES
     Route: 048
     Dates: start: 20021030
  2. FOLIC ACID [Concomitant]
     Dosage: DOSE: UNK

REACTIONS (4)
  - ABORTION INDUCED [None]
  - COMPLICATIONS OF MATERNAL EXPOSURE TO THERAPEUTIC DRUGS [None]
  - INTRACRANIAL VENOUS SINUS THROMBOSIS [None]
  - PREGNANCY [None]
